FAERS Safety Report 5676658-6 (Version None)
Quarter: 2008Q1

REPORT INFORMATION
  Report Type: 
  Country: None (occurrence: None)
  Receive Date: 20080320
  Receipt Date: 20080320
  Transmission Date: 20080703
  Serious: Yes (Other)
  Sender: FDA-Public Use
  Company Number: None

PATIENT
  Age: 64 Year
  Sex: Male
  Weight: 72.5755 kg

DRUGS (1)
  1. DAPTOMYCIN 500MG CUBIST [Suspect]
     Indication: ENDOCARDITIS BACTERIAL
     Dosage: 500MG Q24H IV
     Route: 042
     Dates: start: 20080213, end: 20080227

REACTIONS (1)
  - BLOOD CREATINE PHOSPHOKINASE INCREASED [None]
